FAERS Safety Report 11168106 (Version 1)
Quarter: 2015Q2

REPORT INFORMATION
  Report Type: Spontaneous
  Country: US (occurrence: None)
  Receive Date: 20150604
  Receipt Date: 20150604
  Transmission Date: 20150821
  Serious: No
  Sender: FDA-Public Use
  Company Number: None

PATIENT
  Age: 23 Year
  Sex: Female
  Weight: 64.41 kg

DRUGS (2)
  1. NEXPLANON [Suspect]
     Active Substance: ETONOGESTREL
     Dates: start: 20131126, end: 20150601
  2. MULTI VITAMIN DAILY [Concomitant]

REACTIONS (4)
  - Purulence [None]
  - Implant site erythema [None]
  - Implant site discharge [None]
  - Implant site swelling [None]

NARRATIVE: CASE EVENT DATE: 20150601
